FAERS Safety Report 20409797 (Version 1)
Quarter: 2022Q1

REPORT INFORMATION
  Report Type: Spontaneous
  Country: US (occurrence: US)
  Receive Date: 20220201
  Receipt Date: 20220201
  Transmission Date: 20220423
  Serious: No
  Sender: FDA-Public Use
  Company Number: US-SAREPTA THERAPEUTICS INC.-SRP2021-001836

PATIENT
  Age: 4 Year
  Sex: Male
  Weight: 21.315 kg

DRUGS (10)
  1. AMONDYS 45 [Suspect]
     Active Substance: CASIMERSEN
     Indication: Duchenne muscular dystrophy
     Dosage: 700 MILLIGRAM, WEEKLY
     Route: 042
     Dates: start: 20210622, end: 20210819
  2. AMONDYS 45 [Suspect]
     Active Substance: CASIMERSEN
     Dosage: 700 MILLIGRAM, WEEKLY
     Route: 042
     Dates: start: 20210901
  3. ACETAMINOPHEN [Concomitant]
     Active Substance: ACETAMINOPHEN
     Indication: Pain
     Dosage: 6.6 MILLILITER, Q6H, (160MG/5ML)
     Route: 048
     Dates: start: 20180705
  4. ACETAMINOPHEN [Concomitant]
     Active Substance: ACETAMINOPHEN
     Dosage: 6.6 MILLILITER, Q6H (160MG/5ML)
     Route: 048
     Dates: start: 20210618
  5. CALCIUM CITRATE [Concomitant]
     Active Substance: CALCIUM CITRATE
     Indication: Product used for unknown indication
     Dosage: 250 MILLIGRAM, QD
     Route: 048
     Dates: start: 20210618
  6. CENTRUM KIDS [Concomitant]
     Indication: Product used for unknown indication
     Dosage: 1 DOSAGE FORM, QD
     Route: 048
     Dates: start: 20210618
  7. PREDNISONE [Concomitant]
     Active Substance: PREDNISONE
     Indication: Product used for unknown indication
     Dosage: 3 MILLILITER, QD (5MG/5ML)
     Route: 048
     Dates: start: 20210618
  8. PREDNISONE [Concomitant]
     Active Substance: PREDNISONE
     Dosage: UNK
  9. VITAMIN D3 [Concomitant]
     Active Substance: CHOLECALCIFEROL
     Indication: Product used for unknown indication
     Dosage: 2 DROP, QD (400 IU/4 DROPS)
     Route: 048
     Dates: start: 20210618
  10. VITAMIN D3 [Concomitant]
     Active Substance: CHOLECALCIFEROL
     Dosage: UNK

REACTIONS (1)
  - Pyrexia [Unknown]

NARRATIVE: CASE EVENT DATE: 20210801
